FAERS Safety Report 9396704 (Version 1)
Quarter: 2013Q3

REPORT INFORMATION
  Report Type: Spontaneous
  Country: FI (occurrence: FI)
  Receive Date: 20130712
  Receipt Date: 20130712
  Transmission Date: 20140515
  Serious: Yes (Other)
  Sender: FDA-Public Use
  Company Number: FI-ROCHE-1247031

PATIENT
  Sex: Female
  Weight: 82 kg

DRUGS (4)
  1. XOLAIR [Suspect]
     Indication: ASTHMA
     Route: 065
     Dates: start: 201302
  2. XOLAIR [Suspect]
     Route: 065
     Dates: start: 201303
  3. XOLAIR [Suspect]
     Route: 065
     Dates: start: 201305
  4. PREDNISOLONE [Concomitant]

REACTIONS (3)
  - Local swelling [Recovered/Resolved]
  - Weight increased [Unknown]
  - Swelling [Recovered/Resolved]
